FAERS Safety Report 17429639 (Version 1)
Quarter: 2020Q1

REPORT INFORMATION
  Report Type: Spontaneous
  Country: US (occurrence: US)
  Receive Date: 20200217
  Receipt Date: 20200217
  Transmission Date: 20200409
  Serious: Yes (Hospitalization)
  Sender: FDA-Public Use
  Company Number: None

PATIENT
  Age: 29 Year
  Sex: Female
  Weight: 54.43 kg

DRUGS (5)
  1. LIOTHYRONINE [Concomitant]
     Active Substance: LIOTHYRONINE
  2. LEVOTHROXINE [Concomitant]
     Active Substance: LEVOTHYROXINE
  3. VITAMIN D3 [Concomitant]
     Active Substance: CHOLECALCIFEROL
  4. VITAMIN K [Concomitant]
     Active Substance: PHYTONADIONE
  5. SKYLA [Suspect]
     Active Substance: LEVONORGESTREL
     Dates: start: 20180503, end: 20200106

REACTIONS (5)
  - Complication associated with device [None]
  - Device failure [None]
  - Uterine scar [None]
  - Ectopic pregnancy with contraceptive device [None]
  - Device dislocation [None]
